FAERS Safety Report 7539524-7 (Version None)
Quarter: 2011Q2

REPORT INFORMATION
  Report Type: 
  Country: None (occurrence: None)
  Receive Date: 20110609
  Receipt Date: 20110609
  Transmission Date: 20111010
  Serious: No
  Sender: FDA-Public Use
  Company Number: None

PATIENT
  Sex: Female

DRUGS (1)
  1. XOLAIR [Suspect]
     Dosage: XOLAIR 150MG SDV

REACTIONS (3)
  - DIZZINESS [None]
  - HYPOAESTHESIA [None]
  - ASTHENIA [None]
